FAERS Safety Report 8960343 (Version 1)
Quarter: 2012Q4

REPORT INFORMATION
  Report Type: 
  Country: US (occurrence: US)
  Receive Date: 20121212
  Receipt Date: 20121212
  Transmission Date: 20130627
  Serious: Yes (Hospitalization)
  Sender: FDA-Public Use
  Company Number: US-BAYER-2012-128717

PATIENT
  Age: 31 Year
  Sex: Female
  Weight: 52.61 kg

DRUGS (7)
  1. YAZ [Suspect]
  2. METRONIDAZOLE [Concomitant]
     Dosage: 500 mg, BID
     Dates: start: 20070709
  3. AZITHROMYCIN [Concomitant]
     Dosage: 250 mg, 250 mg tablets two at once, then one for 4 days
  4. ALEVE [Concomitant]
     Dosage: 220 mg, PRN
  5. TYLENOL [Concomitant]
     Indication: PAIN
     Dosage: 325 mg, PRN
  6. VALTREX [Concomitant]
     Dosage: 500 mg, BID
  7. MOTRIN [Concomitant]

REACTIONS (1)
  - Pulmonary embolism [None]
